FAERS Safety Report 21525871 (Version 2)
Quarter: 2024Q2

REPORT INFORMATION
  Report Type: Spontaneous
  Country: AR (occurrence: AR)
  Receive Date: 20221031
  Receipt Date: 20240415
  Transmission Date: 20240715
  Serious: Yes (Other)
  Sender: FDA-Public Use
  Company Number: AR-ABBOTT-2022A-1353113

PATIENT
  Age: 38 Year
  Sex: Female

DRUGS (2)
  1. VALPROATE SODIUM [Suspect]
     Active Substance: VALPROATE SODIUM
     Indication: Bulimia nervosa
     Dosage: ER 500?DRUG REDUCED
     Route: 048
  2. VALPROATE SODIUM [Suspect]
     Active Substance: VALPROATE SODIUM
     Indication: Bulimia nervosa
     Dosage: ER 500
     Route: 048
     Dates: start: 202203, end: 202209

REACTIONS (10)
  - Alopecia [Not Recovered/Not Resolved]
  - Drug ineffective [Unknown]
  - Nail discolouration [Unknown]
  - Product quality issue [Unknown]
  - Off label use [Recovered/Resolved]
  - Depression [Unknown]
  - Somnolence [Unknown]
  - Weight increased [Unknown]
  - Hyporeflexia [Unknown]
  - Pruritus [Unknown]

NARRATIVE: CASE EVENT DATE: 20220301
